FAERS Safety Report 5529712-3 (Version None)
Quarter: 2007Q4

REPORT INFORMATION
  Report Type: 
  Country: None (occurrence: None)
  Receive Date: 20071129
  Receipt Date: 20071119
  Transmission Date: 20080405
  Serious: Yes (Other)
  Sender: FDA-Public Use
  Company Number: CA-ABBOTT-07P-028-0425191-00

PATIENT
  Age: 26 Year
  Sex: Male

DRUGS (6)
  1. CYCLOSPORINE [Suspect]
     Indication: IMMUNOSUPPRESSION
     Dosage: NOT REPORTED
  2. AZATHIOPRINE [Concomitant]
     Indication: IMMUNOSUPPRESSION
     Dosage: NOT REPORTED
  3. PREDNISONE TAB [Concomitant]
     Indication: IMMUNOSUPPRESSION
     Dosage: NOT REPORTED
  4. PREDNISONE TAB [Concomitant]
     Indication: NEPHRITIS INTERSTITIAL
  5. SIROLIMUS [Concomitant]
     Indication: IMMUNOSUPPRESSION
     Dosage: NOT REPORTED
  6. CEPHALEXIN [Concomitant]
     Indication: ACNE
     Dosage: NOT REPORTED

REACTIONS (2)
  - FOCAL GLOMERULOSCLEROSIS [None]
  - NEPHROPATHY TOXIC [None]
